FAERS Safety Report 9207440 (Version 1)
Quarter: 2013Q2

REPORT INFORMATION
  Report Type: Spontaneous
  Country: BR (occurrence: BR)
  Receive Date: 20130403
  Receipt Date: 20130403
  Transmission Date: 20140414
  Serious: Yes (Other)
  Sender: FDA-Public Use
  Company Number: PHHY2013BR032289

PATIENT
  Age: 72 Year
  Sex: Female
  Weight: 46 kg

DRUGS (3)
  1. ACLASTA [Suspect]
     Indication: OSTEOPOROSIS
     Dosage: 5 MG, UNK
     Route: 042
  2. DEPURA [Concomitant]
  3. PURAN T4 [Concomitant]

REACTIONS (1)
  - Foot fracture [Recovering/Resolving]
